FAERS Safety Report 5772302-8 (Version None)
Quarter: 2008Q2

REPORT INFORMATION
  Report Type: 
  Country: None (occurrence: None)
  Receive Date: 20080613
  Receipt Date: 20080612
  Transmission Date: 20081010
  Serious: Yes (Death, Other)
  Sender: FDA-Public Use
  Company Number: PHEH2007US16053

PATIENT
  Sex: Male

DRUGS (1)
  1. EXJADE [Suspect]
     Dosage: 2625 UNK, QD
     Route: 048
     Dates: start: 20070309

REACTIONS (4)
  - CONVULSION [None]
  - DEATH [None]
  - MYOCARDIAL INFARCTION [None]
  - RENAL FAILURE [None]
